FAERS Safety Report 9867150 (Version 1)
Quarter: 2014Q1

REPORT INFORMATION
  Report Type: Spontaneous
  Country: US (occurrence: US)
  Receive Date: 20140204
  Receipt Date: 20140204
  Transmission Date: 20141002
  Serious: No
  Sender: FDA-Public Use
  Company Number: US-009507513-1401USA014366

PATIENT
  Age: 28 Year
  Sex: Female
  Weight: 90.7 kg

DRUGS (1)
  1. NEXPLANON [Suspect]
     Indication: CONTRACEPTION
     Dosage: FREQUENCY: 3 YEAR IMPLANT IN LEFT ARM.
     Route: 059
     Dates: start: 20130408

REACTIONS (3)
  - Implant site pain [Unknown]
  - Discomfort [Unknown]
  - Pain [Unknown]
